APPROVED DRUG PRODUCT: DIVALPROEX SODIUM
Active Ingredient: DIVALPROEX SODIUM
Strength: EQ 500MG VALPROIC ACID
Dosage Form/Route: TABLET, DELAYED RELEASE;ORAL
Application: A079080 | Product #001
Applicant: ACTAVIS LABORATORIES FL INC
Approved: Feb 25, 2011 | RLD: No | RS: No | Type: DISCN